FAERS Safety Report 14842003 (Version 4)
Quarter: 2019Q3

REPORT INFORMATION
  Report Type: Spontaneous
  Country: JP (occurrence: JP)
  Receive Date: 20180503
  Receipt Date: 20190807
  Transmission Date: 20191004
  Serious: Yes (Other)
  Sender: FDA-Public Use
  Company Number: JP-ACTELION-A-CH2018-171685

PATIENT
  Age: 13 Year
  Sex: Male

DRUGS (32)
  1. UPTRAVI [Suspect]
     Active Substance: SELEXIPAG
     Dosage: 0.4 MG, BID
     Route: 048
     Dates: start: 20170303, end: 20170331
  2. UPTRAVI [Suspect]
     Active Substance: SELEXIPAG
     Dosage: 0.7 MG, BID
     Route: 048
     Dates: start: 20170608, end: 20170621
  3. UPTRAVI [Suspect]
     Active Substance: SELEXIPAG
     Dosage: 0.8 MG, BID
     Route: 048
     Dates: start: 20170706, end: 20170719
  4. UPTRAVI [Suspect]
     Active Substance: SELEXIPAG
     Dosage: 1.35 MG, BID
     Route: 048
     Dates: start: 20171109
  5. BERAPROST SODIUM [Concomitant]
     Active Substance: BERAPROST SODIUM
  6. PIMOBENDAN [Concomitant]
     Active Substance: PIMOBENDAN
  7. UPTRAVI [Suspect]
     Active Substance: SELEXIPAG
     Dosage: 0.9 MG, BID
     Route: 048
     Dates: start: 20170803, end: 20170816
  8. UPTRAVI [Suspect]
     Active Substance: SELEXIPAG
     Dosage: 1.3 MG, BID
     Route: 048
     Dates: start: 20171026
  9. OPSUMIT [Suspect]
     Active Substance: MACITENTAN
     Indication: PULMONARY ARTERIAL HYPERTENSION
     Dosage: 10 MG, QD
     Route: 048
     Dates: start: 20160218
  10. RIBALL [Concomitant]
     Active Substance: ALLOPURINOL
  11. OXYGEN. [Concomitant]
     Active Substance: OXYGEN
  12. UPTRAVI [Suspect]
     Active Substance: SELEXIPAG
     Dosage: 0.5 MG, BID
     Route: 048
     Dates: start: 20170413, end: 20170426
  13. UPTRAVI [Suspect]
     Active Substance: SELEXIPAG
     Dosage: 1.25 MG, BID
     Route: 048
     Dates: start: 20171012, end: 20171025
  14. ADCIRCA [Concomitant]
     Active Substance: TADALAFIL
  15. UPTRAVI [Suspect]
     Active Substance: SELEXIPAG
     Dosage: 0.75 MG, BID
     Route: 048
     Dates: start: 20170622, end: 20170705
  16. UPTRAVI [Suspect]
     Active Substance: SELEXIPAG
     Dosage: 1.2 MG, BID
     Route: 048
     Dates: start: 20170928, end: 20171011
  17. UPTRAVI [Suspect]
     Active Substance: SELEXIPAG
     Indication: PULMONARY ARTERIAL HYPERTENSION
     Dosage: 0.35 MG, BID
     Route: 048
     Dates: end: 20170302
  18. UPTRAVI [Suspect]
     Active Substance: SELEXIPAG
     Dosage: 0.45 MG, BID
     Route: 048
     Dates: start: 20170401, end: 20170412
  19. UPTRAVI [Suspect]
     Active Substance: SELEXIPAG
     Dosage: 0.65 MG, BID
     Route: 048
     Dates: start: 20170525, end: 20170607
  20. UPTRAVI [Suspect]
     Active Substance: SELEXIPAG
     Dosage: 0.85 MG, BID
     Route: 048
     Dates: start: 20170720, end: 20170802
  21. UPTRAVI [Suspect]
     Active Substance: SELEXIPAG
     Dosage: 1.0 MG, BID
     Route: 048
     Dates: start: 20170817, end: 20170830
  22. UPTRAVI [Suspect]
     Active Substance: SELEXIPAG
     Dosage: 1.05 MG, BID
     Route: 048
     Dates: start: 20170831, end: 20170913
  23. FUROSEMIDE. [Concomitant]
     Active Substance: FUROSEMIDE
  24. ALDACTONE A [Concomitant]
     Active Substance: SPIRONOLACTONE
  25. ALESION [Concomitant]
     Active Substance: EPINASTINE HYDROCHLORIDE
  26. WARFARIN [Concomitant]
     Active Substance: WARFARIN
  27. FEBURIC [Concomitant]
     Active Substance: FEBUXOSTAT
  28. UPTRAVI [Suspect]
     Active Substance: SELEXIPAG
     Dosage: 0.6 MG, BID
     Route: 048
     Dates: start: 20170511, end: 20170524
  29. UPTRAVI [Suspect]
     Active Substance: SELEXIPAG
     Dosage: 1.1 MG, BID
     Route: 048
     Dates: start: 20170914, end: 20170927
  30. ONON [Concomitant]
     Active Substance: PRANLUKAST
  31. RENIVACE [Concomitant]
     Active Substance: ENALAPRIL
  32. UPTRAVI [Suspect]
     Active Substance: SELEXIPAG
     Dosage: 0.55 MG, BID
     Route: 048
     Dates: start: 20170427, end: 20170510

REACTIONS (4)
  - Blood urea increased [Not Recovered/Not Resolved]
  - Renal impairment [Unknown]
  - Diarrhoea [Recovering/Resolving]
  - Blood creatinine increased [Not Recovered/Not Resolved]

NARRATIVE: CASE EVENT DATE: 20170419
